FAERS Safety Report 5553454-1 (Version None)
Quarter: 2007Q4

REPORT INFORMATION
  Report Type: 
  Country: None (occurrence: None)
  Receive Date: 20071213
  Receipt Date: 20071203
  Transmission Date: 20080405
  Serious: Yes (Other)
  Sender: FDA-Public Use
  Company Number: JP-BRISTOL-MYERS SQUIBB COMPANY-14003081

PATIENT
  Age: 48 Year
  Sex: Male

DRUGS (4)
  1. CYCLOPHOSPHAMIDE [Suspect]
     Dosage: 1 DOSAGEFORM = 50-100 MG
  2. TACROLIMUS [Suspect]
     Indication: IMMUNOSUPPRESSION
     Dosage: TARGET TROUGH CONCENTRATION OF 20-25 NG/ML ON DAYS 0-7,15-20 NG/ML ON DAYS 8-21, 5-10 NG/ML AFTER
  3. AZATHIOPRINE [Suspect]
  4. MIZORIBINE [Suspect]

REACTIONS (1)
  - THROMBOTIC MICROANGIOPATHY [None]
